FAERS Safety Report 9131938 (Version 1)
Quarter: 2013Q1

REPORT INFORMATION
  Report Type: Spontaneous
  Country: US (occurrence: US)
  Receive Date: 20130301
  Receipt Date: 20130301
  Transmission Date: 20140127
  Serious: No
  Sender: FDA-Public Use
  Company Number: US-MYLANLABS-2012S1022735

PATIENT
  Age: 19 Year
  Sex: Female

DRUGS (4)
  1. AMNESTEEM CAPSULES [Suspect]
     Indication: ACNE
     Route: 048
     Dates: start: 20120719, end: 20120918
  2. AMNESTEEM CAPSULES [Suspect]
     Indication: ACNE
     Route: 048
     Dates: start: 20120919, end: 20121007
  3. AMNESTEEM CAPSULES [Suspect]
     Indication: ACNE
     Route: 048
     Dates: start: 20121008, end: 20121014
  4. AMNESTEEM CAPSULES [Suspect]
     Indication: ACNE
     Route: 048
     Dates: start: 20120819, end: 20120918

REACTIONS (3)
  - Mood altered [Recovering/Resolving]
  - Lip dry [Recovering/Resolving]
  - Dry skin [Recovering/Resolving]
